FAERS Safety Report 7985141-4 (Version None)
Quarter: 2011Q4

REPORT INFORMATION
  Report Type: 
  Country: None (occurrence: None)
  Receive Date: 20111216
  Receipt Date: 20111208
  Transmission Date: 20120403
  Serious: Yes (Other)
  Sender: FDA-Public Use
  Company Number: JP-NOVOPROD-341172

PATIENT

DRUGS (1)
  1. NORDITROPIN NORDIFLEX [Suspect]
     Indication: SMALL FOR DATES BABY
     Dosage: 0.45 MG, UNK
     Route: 058
     Dates: start: 20100716

REACTIONS (1)
  - TONSILLAR HYPERTROPHY [None]
